FAERS Safety Report 13131362 (Version 1)
Quarter: 2017Q1

REPORT INFORMATION
  Report Type: Report from Study
  Country: JP (occurrence: JP)
  Receive Date: 20170119
  Receipt Date: 20170119
  Transmission Date: 20170428
  Serious: Yes (Other)
  Sender: FDA-Public Use
  Company Number: JP-MYLANLABS-2017M1002022

PATIENT

DRUGS (4)
  1. DOXORUBICIN [Suspect]
     Active Substance: DOXORUBICIN
     Indication: PLASMA CELL MYELOMA
     Dosage: 30 MG/M 2 ON DAY 4 IN A 21 DAY CYCLE; LATER, CHANGED TO 23 MG/M2
     Route: 041
  2. BORTEZOMIB [Suspect]
     Active Substance: BORTEZOMIB
     Dosage: 1.0 MG/M 2 ON DAYS 1,4,8 AND 11 IN A 21 DAY CYCLE
     Route: 041
  3. BORTEZOMIB [Suspect]
     Active Substance: BORTEZOMIB
     Indication: PLASMA CELL MYELOMA
     Dosage: 1.3 MG/M 2 ON DAYS 1,4,8 AND 11 IN A 21 DAY CYCLE; LATER, DOSE WAS CHANGED TO 1.0 MG/M2
     Route: 041
  4. DOXORUBICIN [Suspect]
     Active Substance: DOXORUBICIN
     Dosage: 23 MG/M 2 ON DAY 4 IN A 21 DAY CYCLE
     Route: 041

REACTIONS (13)
  - Neutropenia [Unknown]
  - Aspartate aminotransferase increased [Unknown]
  - Nausea [Unknown]
  - Rash [Unknown]
  - Leukopenia [Unknown]
  - Palmar-plantar erythrodysaesthesia syndrome [Unknown]
  - Stomatitis [Unknown]
  - Dyspepsia [Unknown]
  - Alanine aminotransferase increased [Unknown]
  - Thrombocytopenia [Recovering/Resolving]
  - Lymphopenia [Unknown]
  - Vomiting [Unknown]
  - Weight decreased [Unknown]
